FAERS Safety Report 9455940 (Version 5)
Quarter: 2014Q1

REPORT INFORMATION
  Report Type: Spontaneous
  Country: US (occurrence: US)
  Receive Date: 20130813
  Receipt Date: 20140130
  Transmission Date: 20141002
  Serious: Yes (Other)
  Sender: FDA-Public Use
  Company Number: US-PFIZER INC-2013233015

PATIENT
  Age: 43 Year
  Sex: Female
  Weight: 57.14 kg

DRUGS (5)
  1. XELJANZ [Suspect]
     Indication: RHEUMATOID ARTHRITIS
     Dosage: 5 MG, 2X/DAY
     Route: 048
     Dates: start: 201305, end: 20130718
  2. METHOTREXATE [Concomitant]
     Indication: RHEUMATOID ARTHRITIS
     Dosage: 15 MG, WEEKLY
  3. PREDNISONE [Concomitant]
     Indication: RHEUMATOID ARTHRITIS
     Dosage: 5 MG, DAILY
  4. MOBIC [Concomitant]
     Indication: RHEUMATOID ARTHRITIS
     Dosage: 7.5 MG, 2X/DAY
  5. PROGESTIN [Concomitant]
     Dosage: UNK

REACTIONS (16)
  - Bladder cancer [Unknown]
  - Kidney infection [Unknown]
  - Uterine haemorrhage [Unknown]
  - Intra-abdominal haemorrhage [Unknown]
  - Cystitis [Unknown]
  - Blood urine present [Unknown]
  - Protein urine present [Unknown]
  - Renal pain [Unknown]
  - Flank pain [Unknown]
  - Contusion [Unknown]
  - Musculoskeletal discomfort [Unknown]
  - Uterine disorder [Unknown]
  - Benign neoplasm of bladder [Unknown]
  - Pain [Recovered/Resolved]
  - Pelvic pain [Unknown]
  - Back pain [Unknown]
